FAERS Safety Report 14489857 (Version 4)
Quarter: 2018Q2

REPORT INFORMATION
  Report Type: Report from Study
  Country: US (occurrence: US)
  Receive Date: 20180206
  Receipt Date: 20180507
  Transmission Date: 20180711
  Serious: Yes (Other)
  Sender: FDA-Public Use
  Company Number: US-ALEXION PHARMACEUTICALS INC.-A201800902

PATIENT
  Sex: Female

DRUGS (1)
  1. STRENSIQ [Suspect]
     Active Substance: ASFOTASE ALFA
     Indication: PRODUCT USED FOR UNKNOWN INDICATION
     Dosage: UNK
     Route: 065

REACTIONS (8)
  - Seizure [Not Recovered/Not Resolved]
  - Contusion [Unknown]
  - Arthralgia [Unknown]
  - Fall [Unknown]
  - Concussion [Unknown]
  - Pain in extremity [Unknown]
  - Dizziness [Unknown]
  - Cerebral haemangioma [Unknown]

NARRATIVE: CASE EVENT DATE: 20180123
